FAERS Safety Report 19017234 (Version 6)
Quarter: 2021Q4

REPORT INFORMATION
  Report Type: Spontaneous
  Country: US (occurrence: US)
  Receive Date: 20210317
  Receipt Date: 20211129
  Transmission Date: 20220304
  Serious: Yes (Hospitalization)
  Sender: FDA-Public Use
  Company Number: US-TEVA-2021-US-1890348

PATIENT
  Age: 64 Year
  Sex: Male

DRUGS (1)
  1. SYNRIBO [Suspect]
     Active Substance: OMACETAXINE MEPESUCCINATE
     Indication: Philadelphia positive chronic myeloid leukaemia
     Dosage: DOSE: 2.2MG/0.63ML, TWICE DAILY X 14 DAYS OF 28 DAY CYCLE
     Route: 058

REACTIONS (5)
  - Myocardial infarction [Unknown]
  - Diarrhoea [Unknown]
  - Needle issue [Unknown]
  - Nausea [Unknown]
  - Vomiting [Unknown]

NARRATIVE: CASE EVENT DATE: 20210301
